FAERS Safety Report 6444000-9 (Version None)
Quarter: 2009Q4

REPORT INFORMATION
  Report Type: 
  Country: None (occurrence: None)
  Receive Date: 20091116
  Receipt Date: 20091116
  Transmission Date: 20100525
  Serious: Yes (Life-Threatening)
  Sender: FDA-Public Use
  Company Number: None

PATIENT
  Age: 86 Year
  Sex: Female
  Weight: 79.3795 kg

DRUGS (1)
  1. NITROFURANTOIN MONOHYDRATE 100MG MYLAN [Suspect]
     Indication: URINARY TRACT INFECTION
     Dates: start: 20091002, end: 20091005

REACTIONS (2)
  - ASTHENIA [None]
  - PERIPHERAL PARALYSIS [None]
